FAERS Safety Report 6842390-6 (Version None)
Quarter: 2010Q3

REPORT INFORMATION
  Report Type: 
  Country: None (occurrence: None)
  Receive Date: 20100714
  Receipt Date: 20070731
  Transmission Date: 20110219
  Serious: No
  Sender: FDA-Public Use
  Company Number: US-PFIZER INC-2007062706

PATIENT
  Weight: 60.8 kg

DRUGS (9)
  1. CHANTIX [Suspect]
     Indication: SMOKING CESSATION THERAPY
     Dates: start: 20070701
  2. AMLODIPINE [Suspect]
     Indication: HYPERTENSION
     Dates: start: 20070101
  3. LISINOPRIL [Suspect]
     Indication: HYPERTENSION
  4. RISPERDAL [Concomitant]
  5. PROPRANOLOL HYDROCHLORIDE [Concomitant]
     Indication: HYPERTENSION
  6. CYMBALTA [Concomitant]
  7. KLONOPIN [Concomitant]
  8. LITHIUM [Concomitant]
  9. LEVOTHYROXINE SODIUM [Concomitant]
     Indication: THYROIDECTOMY

REACTIONS (5)
  - BLOOD PRESSURE FLUCTUATION [None]
  - BLOOD PRESSURE INCREASED [None]
  - DRUG INEFFECTIVE [None]
  - HYPOTENSION [None]
  - SEDATION [None]
